FAERS Safety Report 6592728-2 (Version None)
Quarter: 2010Q1

REPORT INFORMATION
  Report Type: 
  Country: None (occurrence: None)
  Receive Date: 20100212
  Receipt Date: 20100129
  Transmission Date: 20100710
  Serious: Yes (Other)
  Sender: FDA-Public Use
  Company Number: GB-DEXPHARM-20100087

PATIENT
  Sex: Female

DRUGS (1)
  1. OMEPRAZOLE [Suspect]
     Dosage: 10 MG MILLIGRAM(S) ORAL
     Route: 048

REACTIONS (4)
  - HALLUCINATION [None]
  - OEDEMA PERIPHERAL [None]
  - SKIN REACTION [None]
  - SOMNOLENCE [None]
